FAERS Safety Report 11427876 (Version 2)
Quarter: 2015Q3

REPORT INFORMATION
  Report Type: Spontaneous
  Country: US (occurrence: US)
  Receive Date: 20150828
  Receipt Date: 20150916
  Transmission Date: 20151125
  Serious: Yes (Other)
  Sender: FDA-Public Use
  Company Number: US-PFIZER INC-2015239452

PATIENT
  Age: 60 Year
  Sex: Male

DRUGS (10)
  1. SUTENT [Suspect]
     Active Substance: SUNITINIB MALATE
     Dosage: 50 MG, CYCLIC (DAILY FOR 2WEEKS ON / 1 WEEK OFF)
     Dates: start: 20150824
  2. OXYCODONE [Concomitant]
     Active Substance: OXYCODONE
     Dosage: UNK
  3. DEXAMETHASONE. [Concomitant]
     Active Substance: DEXAMETHASONE
     Dosage: UNK
  4. CALCIUM [Concomitant]
     Active Substance: CALCIUM
  5. MORPHINE [Concomitant]
     Active Substance: MORPHINE
     Dosage: UNK
  6. SENNA [Concomitant]
     Active Substance: SENNA LEAF\SENNOSIDES\SENNOSIDES A AND B
     Indication: FAECES HARD
     Dosage: UNK
  7. MINERAL OIL. [Concomitant]
     Active Substance: MINERAL OIL
     Dosage: UNK
  8. SUTENT [Suspect]
     Active Substance: SUNITINIB MALATE
     Indication: RENAL CANCER METASTATIC
     Dosage: 50 MG/DAY, CYCLIC (28 DAYS ON/14 DAYS OFF)
     Dates: start: 20150720, end: 20150810
  9. ATIVAN [Concomitant]
     Active Substance: LORAZEPAM
  10. GRAPE SEED EXTRACT /01364603/ [Concomitant]

REACTIONS (18)
  - Deep vein thrombosis [Recovered/Resolved]
  - Constipation [Not Recovered/Not Resolved]
  - Rectal haemorrhage [Unknown]
  - Yellow skin [Unknown]
  - Blood glucose increased [Unknown]
  - Haemorrhoids [Unknown]
  - Faeces hard [Unknown]
  - Pain in jaw [Unknown]
  - Tooth loss [Unknown]
  - Chromaturia [Unknown]
  - Dyspnoea [Unknown]
  - Hypotension [Recovering/Resolving]
  - Decubitus ulcer [Unknown]
  - Decreased appetite [Recovering/Resolving]
  - Dehydration [Not Recovered/Not Resolved]
  - Fatigue [Unknown]
  - Candida infection [Unknown]
  - Loose tooth [Unknown]

NARRATIVE: CASE EVENT DATE: 20150811
